FAERS Safety Report 6830764-9 (Version None)
Quarter: 2010Q3

REPORT INFORMATION
  Report Type: 
  Country: None (occurrence: None)
  Receive Date: 20100712
  Receipt Date: 20100629
  Transmission Date: 20110219
  Serious: Yes (Other)
  Sender: FDA-Public Use
  Company Number: PHHY2010US42753

PATIENT
  Sex: Female

DRUGS (4)
  1. LOTENSIN [Suspect]
  2. PENICILIN [Concomitant]
  3. CODEINE SULFATE [Concomitant]
  4. ZYRTEC [Concomitant]

REACTIONS (3)
  - ERYTHEMA [None]
  - PANIC ATTACK [None]
  - RASH [None]
